FAERS Safety Report 23473135 (Version 2)
Quarter: 2024Q1

REPORT INFORMATION
  Report Type: Report from Study
  Country: US (occurrence: US)
  Receive Date: 20240203
  Receipt Date: 20240321
  Transmission Date: 20240410
  Serious: No
  Sender: FDA-Public Use
  Company Number: US-UCBSA-2024003742

PATIENT
  Sex: Male
  Weight: 106.58 kg

DRUGS (1)
  1. ROTIGOTINE [Suspect]
     Active Substance: ROTIGOTINE
     Indication: Product used for unknown indication
     Dosage: 6 MILLIGRAM
     Route: 062

REACTIONS (3)
  - Insomnia [Unknown]
  - Drug ineffective [Unknown]
  - Product quality issue [Unknown]
